FAERS Safety Report 6683077-2 (Version None)
Quarter: 2010Q2

REPORT INFORMATION
  Report Type: 
  Country: None (occurrence: None)
  Receive Date: 20100415
  Receipt Date: 20100407
  Transmission Date: 20101027
  Serious: Yes (Death)
  Sender: FDA-Public Use
  Company Number: PHHY2010CA21694

PATIENT
  Sex: Female
  Weight: 79.365 kg

DRUGS (2)
  1. EXELON [Suspect]
     Dosage: DOSE: 5 CM PATCH
     Route: 062
     Dates: start: 20100203
  2. EXELON [Suspect]
     Dosage: DOSE 10 CM PATCH
     Route: 062

REACTIONS (1)
  - DEATH [None]
